FAERS Safety Report 23768321 (Version 1)
Quarter: 2024Q2

REPORT INFORMATION
  Report Type: Spontaneous
  Country: AU (occurrence: AU)
  Receive Date: 20240422
  Receipt Date: 20240422
  Transmission Date: 20240716
  Serious: Yes (Life-Threatening, Other)
  Sender: FDA-Public Use
  Company Number: AU-PFIZER INC-PV202400050693

PATIENT
  Age: 35 Year
  Sex: Male

DRUGS (6)
  1. METHYLPREDNISOLONE [Suspect]
     Active Substance: METHYLPREDNISOLONE
     Indication: Complications of transplanted lung
     Dosage: 1 MG/KG
  2. METHYLPREDNISOLONE [Suspect]
     Active Substance: METHYLPREDNISOLONE
     Indication: Organising pneumonia
  3. ETANERCEPT [Concomitant]
     Active Substance: ETANERCEPT
     Indication: Cystic fibrosis
     Dosage: UNK UNK, WEEKLY
  4. ETANERCEPT [Concomitant]
     Active Substance: ETANERCEPT
     Indication: Arthritis
  5. TOCILIZUMAB [Concomitant]
     Active Substance: TOCILIZUMAB
     Indication: Organising pneumonia
     Dosage: 400 MG
  6. TOCILIZUMAB [Concomitant]
     Active Substance: TOCILIZUMAB
     Dosage: 400 MG, MONTHLY (AT 4 WEEKS)

REACTIONS (2)
  - Therapeutic product effect incomplete [Unknown]
  - Off label use [Unknown]
